FAERS Safety Report 13082179 (Version 6)
Quarter: 2020Q1

REPORT INFORMATION
  Report Type: Spontaneous
  Country: US (occurrence: US)
  Receive Date: 20170103
  Receipt Date: 20200122
  Transmission Date: 20200409
  Serious: Yes (Hospitalization, Other)
  Sender: FDA-Public Use
  Company Number: US-PFIZER INC-2016278932

PATIENT
  Age: 77 Year
  Sex: Female
  Weight: 77 kg

DRUGS (2)
  1. XELJANZ [Suspect]
     Active Substance: TOFACITINIB CITRATE
     Indication: RHEUMATOID ARTHRITIS
     Dosage: 5 MG, ONE IN MORNING ONE IN NIGHT
     Route: 048
     Dates: start: 20160401, end: 2017
  2. XELJANZ [Suspect]
     Active Substance: TOFACITINIB CITRATE
     Indication: ARTHRITIS
     Dosage: 5 MG, ONE IN MORNING ONE IN NIGHT
     Route: 048
     Dates: end: 20200101

REACTIONS (8)
  - Renal disorder [Unknown]
  - Product dose omission [Unknown]
  - Alopecia [Not Recovered/Not Resolved]
  - Infection [Unknown]
  - Oesophageal ulcer [Unknown]
  - Large intestine infection [Unknown]
  - Weight increased [Unknown]
  - Sinusitis [Unknown]

NARRATIVE: CASE EVENT DATE: 201606
